FAERS Safety Report 7493561-X (Version None)
Quarter: 2011Q2

REPORT INFORMATION
  Report Type: 
  Country: None (occurrence: None)
  Receive Date: 20110512
  Receipt Date: 20110502
  Transmission Date: 20111010
  Serious: Yes (Hospitalization)
  Sender: FDA-Public Use
  Company Number: WAES 1012USA00169

PATIENT
  Age: 79 Year
  Sex: Male

DRUGS (16)
  1. VYTORIN [Suspect]
     Indication: ACUTE CORONARY SYNDROME
     Dosage: 10/40 MG DAILY, PO
     Route: 048
     Dates: start: 20061115
  2. DANCOR [Concomitant]
  3. EFFEXOR [Concomitant]
  4. PLACEBO [Suspect]
     Indication: ACUTE CORONARY SYNDROME
     Dosage: PO
     Route: 048
     Dates: start: 20061115
  5. MOVIPREP [Concomitant]
  6. LOSARTAN POTASSIUM - HCTZ [Concomitant]
  7. METOPROLOL TARTRATE [Concomitant]
  8. ASPIRIN [Concomitant]
  9. DEPONIT [Concomitant]
  10. PLACEBO [Suspect]
     Indication: ACUTE CORONARY SYNDROME
     Dosage: PO
     Route: 048
     Dates: start: 20061115
  11. CLOPIDOGREL BESYLATE [Concomitant]
  12. ESOMEPRAZOLE MAGNESIUM [Concomitant]
  13. TORSEMIDE [Concomitant]
  14. METFORMIN HCL [Concomitant]
  15. LYRICA [Concomitant]
  16. ATORVASTATIN CALCIUM [Concomitant]

REACTIONS (1)
  - COLON CANCER [None]
